FAERS Safety Report 4339546-3 (Version None)
Quarter: 2004Q2

REPORT INFORMATION
  Report Type: 
  Country: None (occurrence: None)
  Receive Date: 20040412
  Receipt Date: 20040331
  Transmission Date: 20050107
  Serious: Yes (Other)
  Sender: FDA-Public Use
  Company Number: GB-JNJFOC-20040400577

PATIENT
  Sex: Female

DRUGS (1)
  1. RISPERDAL CONSTA [Suspect]
     Indication: PSYCHOTIC DISORDER

REACTIONS (4)
  - INFLUENZA LIKE ILLNESS [None]
  - JAUNDICE [None]
  - OEDEMA PERIPHERAL [None]
  - SWELLING FACE [None]
